FAERS Safety Report 10362523 (Version 1)
Quarter: 2014Q3

REPORT INFORMATION
  Report Type: Spontaneous
  Country: US (occurrence: None)
  Receive Date: 20140728
  Receipt Date: 20140728
  Transmission Date: 20150326
  Serious: Yes (Other)
  Sender: FDA-Public Use
  Company Number: 54973 AE # 1553

PATIENT
  Age: 82 Year
  Sex: Female

DRUGS (1)
  1. HYLAND^S SEASONAL ALLERGY RELIEF TABLETS [Suspect]
     Active Substance: HOMEOPATHICS
     Dosage: 2 TABS 2-3X/DAY X 1 MO?

REACTIONS (1)
  - Blood pressure increased [None]

NARRATIVE: CASE EVENT DATE: 20140702
